FAERS Safety Report 18217572 (Version 1)
Quarter: 2020Q3

REPORT INFORMATION
  Report Type: Spontaneous
  Country: US (occurrence: US)
  Receive Date: 20200831
  Receipt Date: 20200831
  Transmission Date: 20201103
  Serious: Yes (Hospitalization)
  Sender: FDA-Public Use
  Company Number: None

PATIENT
  Age: 56 Year
  Sex: Female

DRUGS (1)
  1. ACETAMINOPHEN/HYDROCODONE (HYDROCODONE 7.5MG/ACETAMINOPHEN 325MG TAB) [Suspect]
     Active Substance: ACETAMINOPHEN\HYDROCODONE
     Indication: PAIN
     Route: 048
     Dates: start: 20161104, end: 20161116

REACTIONS (5)
  - Fear [None]
  - Syncope [None]
  - Confusional state [None]
  - Muscular weakness [None]
  - Pain [None]

NARRATIVE: CASE EVENT DATE: 20161110
